FAERS Safety Report 19973315 (Version 1)
Quarter: 2021Q4

REPORT INFORMATION
  Report Type: Spontaneous
  Country: US (occurrence: US)
  Receive Date: 20211018
  Receipt Date: 20211018
  Transmission Date: 20220303
  Serious: Yes (Other)
  Sender: FDA-Public Use
  Company Number: None

PATIENT
  Age: 49 Year
  Sex: Female
  Weight: 83.9 kg

DRUGS (1)
  1. LAMOTRIGINE [Suspect]
     Active Substance: LAMOTRIGINE
     Indication: Epilepsy
     Dosage: STOP 25-FEB-0211
     Route: 048
     Dates: start: 20130322

REACTIONS (2)
  - Seizure [None]
  - Drug level below therapeutic [None]

NARRATIVE: CASE EVENT DATE: 20131125
